FAERS Safety Report 8998652 (Version 2)
Quarter: 2013Q1

REPORT INFORMATION
  Report Type: Spontaneous
  Country: US (occurrence: US)
  Receive Date: 20130103
  Receipt Date: 20130119
  Transmission Date: 20140127
  Serious: No
  Sender: FDA-Public Use
  Company Number: US-009507513-1212USA010614

PATIENT
  Age: 56 Year
  Sex: Male

DRUGS (1)
  1. NASONEX [Suspect]
     Indication: RHINITIS ALLERGIC
     Dosage: UNK, QD
     Route: 055
     Dates: start: 201208

REACTIONS (3)
  - Drug dose omission [Unknown]
  - Product quality issue [Unknown]
  - No adverse event [Unknown]
